FAERS Safety Report 13035001 (Version 1)
Quarter: 2016Q4

REPORT INFORMATION
  Report Type: Spontaneous
  Country: US (occurrence: US)
  Receive Date: 20161216
  Receipt Date: 20161216
  Transmission Date: 20170207
  Serious: Yes (Death)
  Sender: FDA-Public Use
  Company Number: US-SAGENTPRD-2016-US-000091

PATIENT
  Age: 4 Month
  Sex: Female

DRUGS (3)
  1. NO DRUG NAME [Concomitant]
  2. OCTREOTIDE ACETATE INJECTION [Suspect]
     Active Substance: OCTREOTIDE ACETATE
     Dosage: 8 MCG/KG/DAY
  3. NO DRUG NAME [Concomitant]

REACTIONS (7)
  - Tachycardia [Fatal]
  - Hypotension [Fatal]
  - Decreased activity [Fatal]
  - Hypernatraemia [Fatal]
  - Abdominal distension [Fatal]
  - Metabolic acidosis [Fatal]
  - Necrotising colitis [Fatal]
